FAERS Safety Report 6309102-6 (Version None)
Quarter: 2009Q3

REPORT INFORMATION
  Report Type: 
  Country: None (occurrence: None)
  Receive Date: 20090811
  Receipt Date: 20090727
  Transmission Date: 20100115
  Serious: Yes (Life-Threatening, Hospitalization)
  Sender: FDA-Public Use
  Company Number: 2009001998

PATIENT
  Age: 77 Year
  Sex: Female

DRUGS (10)
  1. ERLOTINIB (ERLOTINIB) (TABLET) (ERLOTINIB) [Suspect]
     Indication: NON-SMALL CELL LUNG CANCER
     Dosage: (150 MG,QD),ORAL
     Route: 048
     Dates: start: 20090501, end: 20090624
  2. CEFOPERAZONE SODIUM (CEFOPERAZONE SODIUM) (INJECTION FOR INFUSION) [Suspect]
     Dosage: (1.5 GM),INTRAVENOUS
     Route: 042
     Dates: start: 20090615, end: 20090624
  3. VERAPAMIL HYDROCHLORIDE [Concomitant]
  4. PROMAC [Concomitant]
  5. ALDACTONE [Concomitant]
  6. FRANDOL S [Concomitant]
  7. ALOSENN (ALOSENN) [Concomitant]
  8. URINORM (BENZBROMARONE) [Concomitant]
  9. PYRIDOXAL PHOSPHATE (PYRIDOXAL PHOSPHATE) [Concomitant]
  10. GLYCYRRHIZIN [Concomitant]

REACTIONS (10)
  - BLOOD PRESSURE DECREASED [None]
  - DIZZINESS [None]
  - HEPATIC FUNCTION ABNORMAL [None]
  - INFECTION [None]
  - INFLAMMATION [None]
  - MALAISE [None]
  - PAIN [None]
  - PYREXIA [None]
  - SHOCK [None]
  - WHITE BLOOD CELL COUNT INCREASED [None]
